FAERS Safety Report 23518910 (Version 5)
Quarter: 2024Q2

REPORT INFORMATION
  Report Type: Report from Study
  Country: FR (occurrence: FR)
  Receive Date: 20240213
  Receipt Date: 20240607
  Transmission Date: 20240716
  Serious: Yes (Hospitalization)
  Sender: FDA-Public Use
  Company Number: FR-JNJFOC-20231007503

PATIENT
  Age: 50 Year
  Sex: Female
  Weight: 47 kg

DRUGS (9)
  1. RAMIPRIL [Suspect]
     Active Substance: RAMIPRIL
     Indication: Product used for unknown indication
     Dosage: 1.25 MILLIGRAM
     Route: 065
  2. SELEXIPAG [Suspect]
     Active Substance: SELEXIPAG
     Indication: Product used for unknown indication
     Dosage: 200 MICROGRAM, BID
     Route: 048
     Dates: start: 20230919
  3. SELEXIPAG [Suspect]
     Active Substance: SELEXIPAG
     Dosage: UNK, BID (MORNING: 200 / EVENING: 400)
     Route: 048
     Dates: start: 20231109
  4. SELEXIPAG [Suspect]
     Active Substance: SELEXIPAG
     Dosage: 400 MICROGRAM, BID
     Route: 048
     Dates: start: 20231213
  5. SELEXIPAG [Suspect]
     Active Substance: SELEXIPAG
     Dosage: UNK, BID (MORNING: 200 / EVENING: 400)
     Route: 048
     Dates: start: 20240112
  6. TRACLEER [Concomitant]
     Active Substance: BOSENTAN
     Dosage: UNK
     Route: 065
  7. BISOPROLOL [Concomitant]
     Active Substance: BISOPROLOL\BISOPROLOL FUMARATE
     Dosage: 1.25 MILLIGRAM
     Route: 065
  8. FUROSEMIDE [Concomitant]
     Active Substance: FUROSEMIDE
     Dosage: UNK
     Route: 065
  9. REVATIO [Concomitant]
     Active Substance: SILDENAFIL CITRATE
     Dosage: UNK, TAKE 3 INSTEAD OF 4
     Route: 065
     Dates: start: 20240320

REACTIONS (37)
  - COVID-19 [Recovering/Resolving]
  - Hospitalisation [Unknown]
  - Hyperaesthesia teeth [Not Recovered/Not Resolved]
  - Muscular weakness [Recovered/Resolved]
  - Prothrombin time prolonged [Not Recovered/Not Resolved]
  - Abnormal behaviour [Not Recovered/Not Resolved]
  - Nasopharyngitis [Not Recovered/Not Resolved]
  - Pain in jaw [Recovered/Resolved]
  - Productive cough [Not Recovered/Not Resolved]
  - Cardiac disorder [Not Recovered/Not Resolved]
  - Oral herpes [Recovering/Resolving]
  - Dyspnoea exertional [Recovering/Resolving]
  - Weight decreased [Recovering/Resolving]
  - Oropharyngeal pain [Not Recovered/Not Resolved]
  - Toothache [Not Recovered/Not Resolved]
  - Oxygen saturation decreased [Not Recovered/Not Resolved]
  - Bronchitis [Unknown]
  - Tachycardia [Not Recovered/Not Resolved]
  - Heart rate increased [Not Recovered/Not Resolved]
  - Nasal congestion [Recovered/Resolved]
  - Arthralgia [Recovered/Resolved]
  - Pyrexia [Unknown]
  - Fatigue [Recovering/Resolving]
  - Myalgia [Not Recovered/Not Resolved]
  - Cough [Not Recovered/Not Resolved]
  - Vomiting [Recovered/Resolved]
  - Nausea [Not Recovered/Not Resolved]
  - Paraesthesia [Recovered/Resolved]
  - Headache [Recovered/Resolved]
  - Decreased appetite [Recovering/Resolving]
  - Blood pressure systolic decreased [Recovering/Resolving]
  - Anticoagulation drug level below therapeutic [Recovered/Resolved]
  - Somnolence [Recovered/Resolved]
  - International normalised ratio increased [Recovered/Resolved]
  - Mood altered [Recovered/Resolved]
  - Pruritus [Not Recovered/Not Resolved]
  - Scoliosis [Not Recovered/Not Resolved]

NARRATIVE: CASE EVENT DATE: 20230919
